FAERS Safety Report 5844908-9 (Version None)
Quarter: 2008Q3

REPORT INFORMATION
  Report Type: 
  Country: None (occurrence: None)
  Receive Date: 20080813
  Receipt Date: 20080813
  Transmission Date: 20090109
  Serious: No
  Sender: FDA-Public Use
  Company Number: None

PATIENT
  Age: 57 Year
  Sex: Female
  Weight: 72.5755 kg

DRUGS (5)
  1. IBANDRONATE SODIUM [Suspect]
     Indication: OSTEOPENIA
     Dosage: EVERY THREE MONTHS IV, OVER 2.5 YEARS
     Route: 042
     Dates: start: 20050301, end: 20080808
  2. IBANDRONATE SODIUM [Suspect]
     Indication: OSTEOPOROSIS
     Dosage: EVERY THREE MONTHS IV, OVER 2.5 YEARS
     Route: 042
     Dates: start: 20050301, end: 20080808
  3. FOSSAMAX [Concomitant]
  4. ACTONEL [Concomitant]
  5. BONIVA [Concomitant]

REACTIONS (7)
  - BODY HEIGHT DECREASED [None]
  - COMPRESSION FRACTURE [None]
  - INFUSION SITE PAIN [None]
  - INFUSION SITE REACTION [None]
  - INJECTION SITE EXTRAVASATION [None]
  - OSTEOPOROSIS [None]
  - PAIN IN EXTREMITY [None]
